FAERS Safety Report 10079623 (Version 1)
Quarter: 2014Q2

REPORT INFORMATION
  Report Type: Spontaneous
  Country: US (occurrence: None)
  Receive Date: 20140414
  Receipt Date: 20140414
  Transmission Date: 20141212
  Serious: Yes (Disabling)
  Sender: FDA-Public Use
  Company Number: None

PATIENT
  Age: 61 Year
  Sex: Female
  Weight: 81.19 kg

DRUGS (1)
  1. LEVOFLOXACIN [Suspect]
     Indication: SINUSITIS
     Route: 048
     Dates: start: 20140315, end: 20140318

REACTIONS (5)
  - Musculoskeletal stiffness [None]
  - Peripheral swelling [None]
  - Gait disturbance [None]
  - Joint swelling [None]
  - Arthralgia [None]
